FAERS Safety Report 7412614-5 (Version None)
Quarter: 2011Q2

REPORT INFORMATION
  Report Type: 
  Country: None (occurrence: None)
  Receive Date: 20110413
  Receipt Date: 20110405
  Transmission Date: 20111010
  Serious: Yes (Hospitalization)
  Sender: FDA-Public Use
  Company Number: B0710825A

PATIENT
  Age: 60 Year
  Sex: Male

DRUGS (4)
  1. NIQUITIN [Suspect]
     Dosage: 21MG PER DAY
     Route: 062
     Dates: start: 20030329, end: 20030404
  2. LANSOPRAZOLE [Concomitant]
     Route: 065
  3. TRAMADOL HYDROCHLORIDE [Concomitant]
     Route: 065
  4. ATORVASTATIN CALCIUM [Concomitant]
     Route: 065

REACTIONS (7)
  - PRURITUS [None]
  - RASH [None]
  - BLISTER [None]
  - SWELLING FACE [None]
  - OEDEMA PERIPHERAL [None]
  - CHEST PAIN [None]
  - HYPERSENSITIVITY [None]
